FAERS Safety Report 14570204 (Version 2)
Quarter: 2018Q2

REPORT INFORMATION
  Report Type: Spontaneous
  Country: US (occurrence: US)
  Receive Date: 20180225
  Receipt Date: 20180428
  Transmission Date: 20180711
  Serious: Yes (Hospitalization)
  Sender: FDA-Public Use
  Company Number: US-JNJFOC-20180221610

PATIENT
  Age: 54 Year
  Sex: Male

DRUGS (5)
  1. HUMALOG [Concomitant]
     Active Substance: INSULIN LISPRO
     Route: 065
     Dates: start: 2015
  2. XARELTO [Suspect]
     Active Substance: RIVAROXABAN
     Indication: CORONARY ARTERY DISEASE
     Route: 048
     Dates: start: 201111, end: 201602
  3. METFORMIN [Concomitant]
     Active Substance: METFORMIN HYDROCHLORIDE
     Route: 065
     Dates: start: 2015
  4. XARELTO [Suspect]
     Active Substance: RIVAROXABAN
     Indication: MYOCARDIAL INFARCTION
     Route: 048
     Dates: start: 201111, end: 201602
  5. LEVEMIR [Concomitant]
     Active Substance: INSULIN DETEMIR
     Route: 065
     Dates: start: 2015

REACTIONS (3)
  - Off label use [Unknown]
  - Renal haemorrhage [Unknown]
  - Product use in unapproved indication [Unknown]

NARRATIVE: CASE EVENT DATE: 201111
